FAERS Safety Report 21106428 (Version 2)
Quarter: 2023Q1

REPORT INFORMATION
  Report Type: Report from Study
  Country: MX (occurrence: MX)
  Receive Date: 20220720
  Receipt Date: 20230115
  Transmission Date: 20230418
  Serious: Yes (Hospitalization, Other)
  Sender: FDA-Public Use
  Company Number: MX-ABBOTT-2022A-1351059

PATIENT
  Age: 13 Year
  Sex: Female
  Weight: 43 kg

DRUGS (6)
  1. EPIVAL [Suspect]
     Active Substance: DIVALPROEX SODIUM
     Indication: Epilepsy
     Dosage: DAILY DOSE: 1500 MG?ER
     Route: 048
     Dates: start: 2011
  2. EPIVAL [Suspect]
     Active Substance: DIVALPROEX SODIUM
     Indication: Epilepsy
     Dosage: DAILY DOSE: 1000 MG
     Route: 048
  3. EPIVAL [Suspect]
     Active Substance: DIVALPROEX SODIUM
     Indication: Epilepsy
     Dosage: DAILY DOSE: 1000 MG
     Route: 048
  4. EPIVAL [Suspect]
     Active Substance: DIVALPROEX SODIUM
     Indication: Epilepsy
     Dosage: DAILY DOSE: 500 MG
     Route: 048
  5. EPIVAL [Suspect]
     Active Substance: DIVALPROEX SODIUM
     Indication: Epilepsy
     Dosage: DAILY DOSE: 1000 MG 250 MG IN THE MORNING, 250 MG IN THE AFTERNOON AND 500MG AT NIGHT)
     Route: 048
  6. EPIVAL [Suspect]
     Active Substance: DIVALPROEX SODIUM
     Indication: Epilepsy
     Dosage: TIME INTERVAL: 0.33333333 DAYS: DAILY DOSE: 1000 MG (250 MG IN THE MORNING, 250 MG IN THE AFTERNO...
     Route: 048
     Dates: start: 2011

REACTIONS (10)
  - Underdose [Unknown]
  - Seizure [Unknown]
  - Influenza like illness [Unknown]
  - Toothache [Unknown]
  - Balance disorder [Unknown]
  - Menstruation irregular [Unknown]
  - Pyrexia [Unknown]
  - Learning disorder [Unknown]
  - Developmental delay [Unknown]
  - Hypersomnia [Unknown]

NARRATIVE: CASE EVENT DATE: 20201021
